FAERS Safety Report 9675855 (Version 2)
Quarter: 2014Q1

REPORT INFORMATION
  Report Type: Spontaneous
  Country: IT (occurrence: IT)
  Receive Date: 20131107
  Receipt Date: 20140108
  Transmission Date: 20141002
  Serious: Yes (Hospitalization)
  Sender: FDA-Public Use
  Company Number: IT-ABBVIE-13P-083-1166665-00

PATIENT
  Age: 52 Year
  Sex: Female

DRUGS (3)
  1. DEPAKINE CHRONO [Suspect]
     Indication: PERSONALITY DISORDER
     Dosage: 16 DOSAGE FORM
     Route: 048
     Dates: start: 20130815, end: 20130815
  2. TAMOXIFEN CITRATE [Concomitant]
     Indication: PRODUCT USED FOR UNKNOWN INDICATION
  3. ENTACT [Concomitant]
     Indication: PRODUCT USED FOR UNKNOWN INDICATION

REACTIONS (4)
  - Drug abuse [Recovered/Resolved]
  - Paraesthesia [Recovered/Resolved]
  - Diarrhoea [Recovered/Resolved]
  - Asthenia [Recovered/Resolved]
